FAERS Safety Report 10611977 (Version 1)
Quarter: 2014Q4

REPORT INFORMATION
  Report Type: Spontaneous
  Country: JP (occurrence: JP)
  Receive Date: 20141126
  Receipt Date: 20141126
  Transmission Date: 20150529
  Serious: Yes (Life-Threatening, Hospitalization, Other)
  Sender: FDA-Public Use
  Company Number: JP-ABBVIE-14P-087-1312939-00

PATIENT
  Age: 52 Year
  Sex: Female

DRUGS (14)
  1. SEVOFRANE [Suspect]
     Active Substance: SEVOFLURANE
     Indication: MAINTENANCE OF ANAESTHESIA
     Dosage: 0.5-1.5%
     Route: 055
     Dates: start: 20120620, end: 20120620
  2. ULTIVA [Concomitant]
     Active Substance: REMIFENTANIL HYDROCHLORIDE
     Indication: MAINTENANCE OF ANAESTHESIA
     Dosage: 6-7 ML/HR
     Route: 042
     Dates: start: 20120620, end: 20120620
  3. MARCAIN [Concomitant]
     Active Substance: BUPIVACAINE HYDROCHLORIDE
     Indication: LOCAL ANAESTHESIA
     Route: 058
     Dates: start: 20120620, end: 20120620
  4. DIPRIVAN [Concomitant]
     Active Substance: PROPOFOL
     Indication: INDUCTION AND MAINTENANCE OF ANAESTHESIA
     Dosage: 2-5 MCG/ML
     Route: 042
     Dates: start: 20120620, end: 20120620
  5. ESLAX [Concomitant]
     Active Substance: ROCURONIUM BROMIDE
     Indication: MAINTENANCE OF ANAESTHESIA
     Route: 042
     Dates: start: 20120620, end: 20120620
  6. BRIDION [Concomitant]
     Active Substance: SUGAMMADEX
     Indication: NEUROMUSCULAR BLOCKADE
     Route: 042
     Dates: start: 20120620, end: 20120620
  7. FENTANYL CITRATE. [Concomitant]
     Active Substance: FENTANYL CITRATE
     Indication: INDUCTION AND MAINTENANCE OF ANAESTHESIA
     Dosage: 0.20-0.4MG
     Route: 042
     Dates: start: 20120620, end: 20120620
  8. ESLAX [Concomitant]
     Active Substance: ROCURONIUM BROMIDE
     Indication: INDUCTION AND MAINTENANCE OF ANAESTHESIA
     Route: 042
     Dates: start: 20120620, end: 20120620
  9. XYLOCAINE [Concomitant]
     Active Substance: LIDOCAINE HYDROCHLORIDE
     Indication: LOCAL ANAESTHESIA
     Route: 058
     Dates: start: 20120620, end: 20120620
  10. FENTANYL CITRATE. [Concomitant]
     Active Substance: FENTANYL CITRATE
     Indication: MAINTENANCE OF ANAESTHESIA
  11. PHENYLEPHRINE HYDROCHLORIDE. [Suspect]
     Active Substance: PHENYLEPHRINE HYDROCHLORIDE
     Indication: HYPOTENSION
     Route: 042
     Dates: start: 20120620, end: 20120620
  12. DIPRIVAN [Concomitant]
     Active Substance: PROPOFOL
     Indication: MAINTENANCE OF ANAESTHESIA
  13. EPHEDRIN [Suspect]
     Active Substance: EPHEDRINE HYDROCHLORIDE
     Indication: HYPOTENSION
     Route: 042
     Dates: start: 20120620, end: 20120620
  14. ESLAX [Concomitant]
     Active Substance: ROCURONIUM BROMIDE
     Indication: HYPOTONIA

REACTIONS (2)
  - Extrasystoles [Unknown]
  - Ventricular tachycardia [Unknown]

NARRATIVE: CASE EVENT DATE: 20120620
